FAERS Safety Report 24136250 (Version 2)
Quarter: 2024Q3

REPORT INFORMATION
  Report Type: Spontaneous
  Country: US (occurrence: US)
  Receive Date: 20240725
  Receipt Date: 20240813
  Transmission Date: 20241017
  Serious: No
  Sender: JOHNSON AND JOHNSON
  Company Number: US-JNJFOC-20240703222

PATIENT
  Age: 61 Year
  Sex: Female

DRUGS (10)
  1. IMODIUM [Suspect]
     Active Substance: LOPERAMIDE HYDROCHLORIDE
     Indication: Diarrhoea
     Route: 065
     Dates: start: 2024
  2. TYLENOL [Suspect]
     Active Substance: ACETAMINOPHEN
     Indication: Headache
     Route: 065
     Dates: start: 2024
  3. OPSUMIT [Concomitant]
     Active Substance: MACITENTAN
     Indication: Product used for unknown indication
     Route: 065
  4. TYVASO DPI [Concomitant]
     Active Substance: TREPROSTINIL
     Indication: Pulmonary arterial hypertension
     Dosage: 16 UG
     Route: 065
     Dates: start: 2024, end: 2024
  5. TYVASO DPI [Concomitant]
     Active Substance: TREPROSTINIL
     Route: 065
  6. TYVASO DPI [Concomitant]
     Active Substance: TREPROSTINIL
     Route: 065
  7. TYVASO DPI [Concomitant]
     Active Substance: TREPROSTINIL
     Route: 065
  8. TYVASO DPI [Concomitant]
     Active Substance: TREPROSTINIL
     Dosage: 32 UG,
     Route: 065
     Dates: start: 2024, end: 2024
  9. TYVASO DPI [Concomitant]
     Active Substance: TREPROSTINIL
     Dosage: 48 UG,
     Route: 065
     Dates: start: 2024
  10. TYVASO DPI [Concomitant]
     Active Substance: TREPROSTINIL
     Route: 065
     Dates: start: 202404

REACTIONS (1)
  - Therapeutic product effect incomplete [Unknown]
